FAERS Safety Report 8546924-5 (Version None)
Quarter: 2012Q3

REPORT INFORMATION
  Report Type: 
  Country: None (occurrence: None)
  Receive Date: 20120727
  Receipt Date: 20120130
  Transmission Date: 20120928
  Serious: No
  Sender: FDA-Public Use
  Company Number: US-ASTRAZENECA-2012SE03952

PATIENT
  Age: 51 Year
  Sex: Female

DRUGS (1)
  1. SEROQUEL [Suspect]
     Route: 048

REACTIONS (3)
  - ADVERSE DRUG REACTION [None]
  - EMOTIONAL DISORDER [None]
  - DRUG DOSE OMISSION [None]
